FAERS Safety Report 10760070 (Version 1)
Quarter: 2015Q1

REPORT INFORMATION
  Report Type: Spontaneous
  Country: IN (occurrence: IN)
  Receive Date: 20150204
  Receipt Date: 20150204
  Transmission Date: 20150721
  Serious: Yes (Life-Threatening)
  Sender: FDA-Public Use
  Company Number: IN-ROCHE-1530819

PATIENT
  Age: 69 Year
  Sex: Female

DRUGS (1)
  1. ACTILYSE [Suspect]
     Active Substance: ALTEPLASE
     Indication: ISCHAEMIC STROKE
     Route: 042

REACTIONS (7)
  - Intraventricular haemorrhage [Recovered/Resolved with Sequelae]
  - Altered state of consciousness [Unknown]
  - Vomiting [Unknown]
  - Hydrocephalus [Recovered/Resolved with Sequelae]
  - Dyspnoea [Recovered/Resolved]
  - Thalamus haemorrhage [Recovered/Resolved with Sequelae]
  - Somnolence [Unknown]
